FAERS Safety Report 5106090-5 (Version None)
Quarter: 2006Q3

REPORT INFORMATION
  Report Type: 
  Country: None (occurrence: None)
  Receive Date: 20060912
  Receipt Date: 20060907
  Transmission Date: 20061208
  Serious: Yes (Death)
  Sender: FDA-Public Use
  Company Number: 163-20785-06090202

PATIENT
  Sex: Female

DRUGS (2)
  1. THALOMID [Suspect]
     Indication: MALIGNANT NEOPLASM OF UTERINE ADNEXA
     Dosage: 150 MG, DAILY, ORAL
     Route: 048
  2. THALOMID [Suspect]

REACTIONS (1)
  - NEOPLASM MALIGNANT [None]
